FAERS Safety Report 11634852 (Version 1)
Quarter: 2015Q4

REPORT INFORMATION
  Report Type: Spontaneous
  Country: US (occurrence: US)
  Receive Date: 20151015
  Receipt Date: 20151015
  Transmission Date: 20160304
  Serious: Yes (Hospitalization)
  Sender: FDA-Public Use
  Company Number: US-LUNDBECK-DKLU2005284

PATIENT
  Sex: Female

DRUGS (2)
  1. ONFI [Suspect]
     Active Substance: CLOBAZAM
     Indication: STURGE-WEBER SYNDROME
     Route: 065
  2. ONFI [Suspect]
     Active Substance: CLOBAZAM
     Dosage: 12 OR 15ML
     Route: 065

REACTIONS (2)
  - Seizure [Unknown]
  - Enuresis [Unknown]
